FAERS Safety Report 15213738 (Version 1)
Quarter: 2018Q3

REPORT INFORMATION
  Report Type: Spontaneous
  Country: US (occurrence: US)
  Receive Date: 20180730
  Receipt Date: 20180730
  Transmission Date: 20181010
  Serious: Yes (Other)
  Sender: FDA-Public Use
  Company Number: US-SA-2018SA059070

PATIENT
  Age: 63 Year
  Sex: Female
  Weight: 133 kg

DRUGS (14)
  1. TAXOTERE [Suspect]
     Active Substance: DOCETAXEL
     Indication: BREAST CANCER FEMALE
     Dosage: UNK UNK,Q3W
     Route: 042
     Dates: start: 20140111, end: 20140111
  2. CARVEDILOL. [Concomitant]
     Active Substance: CARVEDILOL
  3. NOVOLIN R [Concomitant]
     Active Substance: INSULIN HUMAN
  4. NEOSAR [Concomitant]
     Active Substance: CYCLOPHOSPHAMIDE
     Dosage: 600 MG/M2
  5. DILTIAZEM. [Concomitant]
     Active Substance: DILTIAZEM
     Dosage: UNK UNK,UNK
     Route: 065
     Dates: start: 2014
  6. CLONIDINE. [Concomitant]
     Active Substance: CLONIDINE
     Dosage: UNK UNK,UNK
     Route: 065
     Dates: start: 2014
  7. TAXOTERE [Suspect]
     Active Substance: DOCETAXEL
     Dosage: UNK UNK,Q3W
     Route: 051
     Dates: start: 20160202, end: 20160202
  8. LANTUS [Concomitant]
     Active Substance: INSULIN GLARGINE
  9. LETROZOLE. [Concomitant]
     Active Substance: LETROZOLE
     Dosage: UNK UNK,UNK
     Route: 065
     Dates: start: 2016
  10. FUROSEMIDE. [Concomitant]
     Active Substance: FUROSEMIDE
     Dosage: UNK UNK,UNK
     Route: 065
     Dates: start: 2014
  11. VICTOZA [Concomitant]
     Active Substance: LIRAGLUTIDE
     Dosage: UNK UNK,UNK
     Route: 065
     Dates: start: 2014
  12. COLCRYS [Concomitant]
     Active Substance: COLCHICINE
     Dosage: UNK UNK,UNK
     Route: 065
     Dates: start: 2014
  13. LOSARTAN. [Concomitant]
     Active Substance: LOSARTAN
     Dosage: UNK UNK,UNK
     Route: 065
     Dates: start: 2014
  14. ALLOPURINOL. [Concomitant]
     Active Substance: ALLOPURINOL
     Dosage: UNK UNK,UNK
     Route: 065
     Dates: start: 2014

REACTIONS (1)
  - Alopecia [Not Recovered/Not Resolved]

NARRATIVE: CASE EVENT DATE: 201511
